FAERS Safety Report 22003731 (Version 1)
Quarter: 2023Q1

REPORT INFORMATION
  Report Type: Spontaneous
  Country: GB (occurrence: GB)
  Receive Date: 20230217
  Receipt Date: 20230217
  Transmission Date: 20230417
  Serious: Yes (Life-Threatening, Hospitalization, Other)
  Sender: FDA-Public Use
  Company Number: GB-MLMSERVICE-20230206-4089765-1

PATIENT

DRUGS (26)
  1. METHOTREXATE [Suspect]
     Active Substance: METHOTREXATE
     Indication: Immunosuppressant drug therapy
  2. METHOTREXATE [Suspect]
     Active Substance: METHOTREXATE
     Indication: Anti-melanoma differentiation-associated protein 5 antibody positive
  3. METHOTREXATE [Suspect]
     Active Substance: METHOTREXATE
     Indication: Dermatomyositis
  4. METHOTREXATE [Suspect]
     Active Substance: METHOTREXATE
     Indication: Interstitial lung disease
  5. METHOTREXATE [Suspect]
     Active Substance: METHOTREXATE
     Indication: Disease progression
  6. PREDNISOLONE [Suspect]
     Active Substance: PREDNISOLONE
     Indication: Immunosuppressant drug therapy
     Dosage: TAPERED
     Route: 048
  7. PREDNISOLONE [Suspect]
     Active Substance: PREDNISOLONE
     Indication: Dermatomyositis
     Dosage: UNK
     Route: 048
  8. PREDNISOLONE [Suspect]
     Active Substance: PREDNISOLONE
     Indication: Interstitial lung disease
  9. PREDNISOLONE [Suspect]
     Active Substance: PREDNISOLONE
     Indication: Anti-melanoma differentiation-associated protein 5 antibody positive
  10. RITUXIMAB [Suspect]
     Active Substance: RITUXIMAB
     Indication: Disease progression
  11. RITUXIMAB [Suspect]
     Active Substance: RITUXIMAB
     Indication: Dermatomyositis
  12. RITUXIMAB [Suspect]
     Active Substance: RITUXIMAB
     Indication: Interstitial lung disease
  13. RITUXIMAB [Suspect]
     Active Substance: RITUXIMAB
     Indication: Immunosuppressant drug therapy
  14. RITUXIMAB [Suspect]
     Active Substance: RITUXIMAB
     Indication: Anti-melanoma differentiation-associated protein 5 antibody positive
  15. METHYLPREDNISOLONE [Suspect]
     Active Substance: METHYLPREDNISOLONE
     Indication: Dermatomyositis
     Dosage: PULSES OF IV METHYLPREDNISOLONE
     Route: 042
  16. METHYLPREDNISOLONE [Suspect]
     Active Substance: METHYLPREDNISOLONE
     Indication: Interstitial lung disease
     Dosage: PULSED WITH IVMP
     Route: 042
  17. METHYLPREDNISOLONE [Suspect]
     Active Substance: METHYLPREDNISOLONE
     Indication: Disease progression
  18. METHYLPREDNISOLONE [Suspect]
     Active Substance: METHYLPREDNISOLONE
     Indication: Immunosuppressant drug therapy
  19. METHYLPREDNISOLONE [Suspect]
     Active Substance: METHYLPREDNISOLONE
     Indication: Anti-melanoma differentiation-associated protein 5 antibody positive
  20. CYCLOPHOSPHAMIDE [Suspect]
     Active Substance: CYCLOPHOSPHAMIDE
     Indication: Disease progression
     Route: 042
  21. CYCLOPHOSPHAMIDE [Suspect]
     Active Substance: CYCLOPHOSPHAMIDE
     Indication: Dermatomyositis
  22. CYCLOPHOSPHAMIDE [Suspect]
     Active Substance: CYCLOPHOSPHAMIDE
     Indication: Immunosuppressant drug therapy
  23. CYCLOPHOSPHAMIDE [Suspect]
     Active Substance: CYCLOPHOSPHAMIDE
     Indication: Interstitial lung disease
  24. CYCLOSPORINE [Suspect]
     Active Substance: CYCLOSPORINE
     Indication: Anti-melanoma differentiation-associated protein 5 antibody positive
     Dosage: UNK
  25. CYCLOSPORINE [Suspect]
     Active Substance: CYCLOSPORINE
     Indication: Interstitial lung disease
  26. CYCLOSPORINE [Suspect]
     Active Substance: CYCLOSPORINE
     Indication: Immunosuppressant drug therapy

REACTIONS (3)
  - Respiratory distress [Recovered/Resolved]
  - Condition aggravated [Recovered/Resolved]
  - Pneumocystis jirovecii pneumonia [Recovered/Resolved]
